FAERS Safety Report 24871215 (Version 2)
Quarter: 2025Q1

REPORT INFORMATION
  Report Type: Report from Study
  Country: US (occurrence: US)
  Receive Date: 20250122
  Receipt Date: 20250123
  Transmission Date: 20250409
  Serious: No
  Sender: SANDOZ
  Company Number: US-SANDOZ-SDZ2025US001789

PATIENT
  Age: 46 Year
  Sex: Female

DRUGS (2)
  1. GLATOPA [Suspect]
     Active Substance: GLATIRAMER ACETATE
     Indication: Multiple sclerosis
     Route: 058
     Dates: start: 20250110
  2. GLATOPA [Suspect]
     Active Substance: GLATIRAMER ACETATE
     Route: 058

REACTIONS (9)
  - Injection site discolouration [Unknown]
  - Hyperhidrosis [Unknown]
  - Anxiety [Unknown]
  - Flushing [Unknown]
  - Injection site pruritus [Unknown]
  - Dizziness [Unknown]
  - Device difficult to use [Unknown]
  - Incorrect dose administered by device [Unknown]
  - Device malfunction [Unknown]

NARRATIVE: CASE EVENT DATE: 20250110
